FAERS Safety Report 18660199 (Version 1)
Quarter: 2020Q4

REPORT INFORMATION
  Report Type: Spontaneous
  Country: US (occurrence: US)
  Receive Date: 20201223
  Receipt Date: 20201223
  Transmission Date: 20210114
  Serious: No
  Sender: FDA-Public Use
  Company Number: None

PATIENT
  Age: 12 Day
  Sex: Male
  Weight: 730 kg

DRUGS (1)
  1. GENOSYL [Suspect]
     Active Substance: NITRIC OXIDE

REACTIONS (2)
  - Acute respiratory failure [None]
  - Device delivery system issue [None]

NARRATIVE: CASE EVENT DATE: 202012
